FAERS Safety Report 16829376 (Version 1)
Quarter: 2019Q3

REPORT INFORMATION
  Report Type: Spontaneous
  Country: US (occurrence: US)
  Receive Date: 20190919
  Receipt Date: 20190919
  Transmission Date: 20191005
  Serious: Yes (Other)
  Sender: FDA-Public Use
  Company Number: US-AMERICAN REGENT INC-20190745

PATIENT
  Age: 35 Year
  Sex: Female
  Weight: 59.87 kg

DRUGS (8)
  1. AVIATHI OTHRINE [Concomitant]
     Indication: PRODUCT USED FOR UNKNOWN INDICATION
     Dosage: 50 MG ONCE DAILY
     Route: 048
  2. COLESTIPOL [Concomitant]
     Active Substance: COLESTIPOL
     Indication: PRODUCT USED FOR UNKNOWN INDICATION
     Dosage: 1 G ONCE DAILY
     Route: 065
  3. REMICADE [Concomitant]
     Active Substance: INFLIXIMAB
     Indication: PRODUCT USED FOR UNKNOWN INDICATION
     Dosage: 100 MG EVERY 8 WEEKS
     Route: 042
  4. FERROUS SULFATE. [Concomitant]
     Active Substance: FERROUS SULFATE
     Indication: PRODUCT USED FOR UNKNOWN INDICATION
     Dosage: 325 MG ONCE DAILY
     Route: 048
  5. INJECTAFER [Suspect]
     Active Substance: FERRIC CARBOXYMALTOSE
     Dosage: 750 MG 15 MINUTES
     Route: 042
     Dates: start: 2019, end: 2019
  6. CHOLECALCIFEROL [Concomitant]
     Active Substance: CHOLECALCIFEROL
     Indication: PRODUCT USED FOR UNKNOWN INDICATION
     Dosage: 2000 UNITS ONCE DAILY
     Route: 048
  7. SERTRALINE [Concomitant]
     Active Substance: SERTRALINE HYDROCHLORIDE
     Indication: PRODUCT USED FOR UNKNOWN INDICATION
     Dosage: 50 MG ONCE DAILY
     Route: 048
  8. NASCOBOL [Concomitant]
     Indication: PRODUCT USED FOR UNKNOWN INDICATION
     Dosage: 1 SPRAY ONCE WEEKLY

REACTIONS (3)
  - Pruritus [Unknown]
  - Urticaria [Unknown]
  - Rash [Recovering/Resolving]

NARRATIVE: CASE EVENT DATE: 2019
